FAERS Safety Report 20981866 (Version 1)
Quarter: 2022Q2

REPORT INFORMATION
  Report Type: Report from Study
  Country: US (occurrence: None)
  Receive Date: 20220620
  Receipt Date: 20220620
  Transmission Date: 20220721
  Serious: Yes (Hospitalization)
  Sender: FDA-Public Use
  Company Number: US-Eisai Medical Research-EC-2022-116953

PATIENT
  Age: 75 Year
  Sex: Female

DRUGS (5)
  1. LENVIMA [Suspect]
     Active Substance: LENVATINIB
     Indication: Uterine cancer
     Route: 048
     Dates: start: 20211231
  2. LENVIMA [Suspect]
     Active Substance: LENVATINIB
     Route: 048
     Dates: start: 20220222, end: 202202
  3. LENVIMA [Suspect]
     Active Substance: LENVATINIB
     Dosage: ON A 5 DAY ON 2 DAY OFF SCHEDULE
     Route: 048
     Dates: start: 20220314, end: 20220523
  4. LENVIMA [Suspect]
     Active Substance: LENVATINIB
     Dosage: ON A 5 DAY ON 2 DAY OFF SCHEDULE
     Route: 048
     Dates: start: 20220530
  5. SERTRALINE [Concomitant]
     Active Substance: SERTRALINE HYDROCHLORIDE
     Indication: Product used for unknown indication
     Dosage: FREQUENCY AND DOSE UNKNOWN

REACTIONS (2)
  - Vertigo [Unknown]
  - Balance disorder [Unknown]

NARRATIVE: CASE EVENT DATE: 20220523
